FAERS Safety Report 10503934 (Version 1)
Quarter: 2014Q4

REPORT INFORMATION
  Report Type: Spontaneous
  Country: US (occurrence: None)
  Receive Date: 20141007
  Receipt Date: 20141007
  Transmission Date: 20150528
  Serious: No
  Sender: FDA-Public Use
  Company Number: None

PATIENT
  Age: 67 Year
  Sex: Female

DRUGS (12)
  1. FERROUS SULFATE [Concomitant]
     Active Substance: FERROUS SULFATE\FERROUS SULFATE, DRIED
  2. ZOLPIDEM [Concomitant]
     Active Substance: ZOLPIDEM\ZOLPIDEM TARTRATE
  3. COPAXONE [Suspect]
     Active Substance: GLATIRAMER ACETATE
     Indication: MULTIPLE SCLEROSIS
     Dosage: 40 MG TIW UNDER THE SKIN
     Dates: start: 20080212
  4. COPAXONE [Concomitant]
     Active Substance: GLATIRAMER ACETATE
  5. COPAXONE [Concomitant]
     Active Substance: GLATIRAMER ACETATE
  6. MULTI TAB FOR HER [Concomitant]
  7. NEURONTIN [Concomitant]
     Active Substance: GABAPENTIN
  8. AMPYRA [Concomitant]
     Active Substance: DALFAMPRIDINE
  9. B-D SHARPS CONTAINER [Concomitant]
  10. TYLENOL [Concomitant]
     Active Substance: ACETAMINOPHEN
  11. BACLOFEN. [Concomitant]
     Active Substance: BACLOFEN
  12. ZESTORETIC [Concomitant]
     Active Substance: HYDROCHLOROTHIAZIDE\LISINOPRIL

REACTIONS (5)
  - Oedema [None]
  - Decreased appetite [None]
  - Influenza like illness [None]
  - Constipation [None]
  - Memory impairment [None]

NARRATIVE: CASE EVENT DATE: 20140926
